FAERS Safety Report 9390892 (Version 2)
Quarter: 2013Q3

REPORT INFORMATION
  Report Type: Spontaneous
  Country: US (occurrence: US)
  Receive Date: 20130709
  Receipt Date: 20130729
  Transmission Date: 20140515
  Serious: No
  Sender: FDA-Public Use
  Company Number: US-PFIZER INC-2013201696

PATIENT
  Age: 55 Year
  Sex: Male
  Weight: 74.83 kg

DRUGS (4)
  1. PRISTIQ [Suspect]
     Indication: DEPRESSION
     Dosage: 100 MG, 1X/DAY
     Route: 048
     Dates: start: 2011, end: 201306
  2. LAMICTAL [Concomitant]
     Indication: DEPRESSION
     Dosage: UNK, 1X/DAY
  3. TRAZODONE [Concomitant]
     Dosage: UNK, 1X/DAY
  4. CLONAZEPAM [Concomitant]
     Dosage: UNK, 1X/DAY

REACTIONS (3)
  - Nausea [Recovered/Resolved]
  - Dizziness [Recovered/Resolved]
  - Lethargy [Recovered/Resolved]
